FAERS Safety Report 15133143 (Version 1)
Quarter: 2018Q3

REPORT INFORMATION
  Report Type: Spontaneous
  Country: IT (occurrence: IT)
  Receive Date: 20180712
  Receipt Date: 20180712
  Transmission Date: 20181010
  Serious: Yes (Other)
  Sender: FDA-Public Use
  Company Number: IT-TEVA-2018-IT-923703

PATIENT
  Age: 64 Year
  Sex: Female

DRUGS (2)
  1. ATORVASTATIN [Suspect]
     Active Substance: ATORVASTATIN
     Indication: HYPERCHOLESTEROLAEMIA
     Dates: start: 20180604
  2. MUNDOSON 1 MG/G CREMA [Suspect]
     Active Substance: MOMETASONE FUROATE
     Indication: ANAL PRURITUS
     Dosage: 1 MG/G
     Dates: start: 20180604

REACTIONS (5)
  - Erythema [Recovering/Resolving]
  - Palatal oedema [Recovering/Resolving]
  - Pruritus [Recovering/Resolving]
  - Chills [Recovering/Resolving]
  - Circumoral oedema [Recovering/Resolving]

NARRATIVE: CASE EVENT DATE: 20180604
